FAERS Safety Report 5160875-8 (Version None)
Quarter: 2006Q4

REPORT INFORMATION
  Report Type: 
  Country: None (occurrence: None)
  Receive Date: 20061121
  Receipt Date: 20061108
  Transmission Date: 20070319
  Serious: Yes (Hospitalization)
  Sender: FDA-Public Use
  Company Number: 430001L06ITA

PATIENT
  Age: 35 Year
  Sex: Female

DRUGS (1)
  1. MITOXANTRONE [Suspect]
     Indication: RELAPSING-REMITTING MULTIPLE SCLEROSIS
     Dosage: INTRAVENOUS
     Route: 042
     Dates: start: 20030701, end: 20040901

REACTIONS (5)
  - ACUTE MYELOID LEUKAEMIA [None]
  - NUCLEAR MAGNETIC RESONANCE IMAGING ABNORMAL [None]
  - SPINAL DISORDER [None]
  - STEM CELL TRANSPLANT [None]
  - TREATMENT RELATED SECONDARY MALIGNANCY [None]
